FAERS Safety Report 12459861 (Version 1)
Quarter: 2016Q2

REPORT INFORMATION
  Report Type: Spontaneous
  Country: IT (occurrence: IT)
  Receive Date: 20160613
  Receipt Date: 20160613
  Transmission Date: 20160815
  Serious: Yes (Hospitalization, Other)
  Sender: FDA-Public Use
  Company Number: IT-MYLANLABS-2016M1023864

PATIENT

DRUGS (8)
  1. DELORAZEPAM [Suspect]
     Active Substance: DELORAZEPAM
     Dosage: THEN TAPERED TO 6 MG PER DAY
  2. LEVETIRACETAM. [Suspect]
     Active Substance: LEVETIRACETAM
     Indication: SEIZURE
  3. CIPROFLOXACIN. [Suspect]
     Active Substance: CIPROFLOXACIN
     Indication: URINARY TRACT INFECTION
  4. CHOLECALCIFEROL [Suspect]
     Active Substance: CHOLECALCIFEROL
     Indication: VITAMIN D DEFICIENCY
     Dosage: 100000 IU, UNK
  5. POTASSIUM [Suspect]
     Active Substance: POTASSIUM
     Indication: HYPOKALAEMIA
     Route: 048
  6. DELORAZEPAM [Suspect]
     Active Substance: DELORAZEPAM
     Indication: ALCOHOL WITHDRAWAL SYNDROME
     Dosage: 9 MG, QD
  7. CARBAMAZEPINE. [Suspect]
     Active Substance: CARBAMAZEPINE
     Indication: SEIZURE
  8. THIAMINE. [Suspect]
     Active Substance: THIAMINE
     Indication: VITAMIN SUPPLEMENTATION
     Dosage: 100 MG, QD

REACTIONS (4)
  - Sensory disturbance [Not Recovered/Not Resolved]
  - Confabulation [Not Recovered/Not Resolved]
  - Wernicke^s encephalopathy [Not Recovered/Not Resolved]
  - Psychomotor hyperactivity [Unknown]
